FAERS Safety Report 8623512-3 (Version None)
Quarter: 2012Q3

REPORT INFORMATION
  Report Type: 
  Country: None (occurrence: None)
  Receive Date: 20120827
  Receipt Date: 20120816
  Transmission Date: 20120928
  Serious: Yes (Other)
  Sender: FDA-Public Use
  Company Number: JP-UCBSA-064140

PATIENT
  Age: 83 Year
  Sex: Male

DRUGS (5)
  1. KEPPRA [Suspect]
     Indication: SIMPLE PARTIAL SEIZURES
     Route: 048
     Dates: start: 20120304, end: 20120322
  2. PHENYTOIN SODIUM CAP [Suspect]
     Indication: PARTIAL SEIZURES WITH SECONDARY GENERALISATION
     Dosage: DAILY DOSE : 200 MG
     Route: 048
     Dates: end: 20120322
  3. KEPPRA [Suspect]
     Indication: PARTIAL SEIZURES WITH SECONDARY GENERALISATION
     Route: 048
     Dates: start: 20120304, end: 20120322
  4. PHENYTOIN SODIUM CAP [Suspect]
     Indication: SIMPLE PARTIAL SEIZURES
     Dosage: DAILY DOSE : 200 MG
     Route: 048
     Dates: end: 20120322
  5. PLAVIX [Suspect]
     Dosage: DAILY DOSE: 75 MG
     Route: 048
     Dates: end: 20120322

REACTIONS (2)
  - RASH [None]
  - PLATELET COUNT DECREASED [None]
